FAERS Safety Report 9438962 (Version 4)
Quarter: 2014Q4

REPORT INFORMATION
  Report Type: Report from Study
  Country: DE (occurrence: DE)
  Receive Date: 20130802
  Receipt Date: 20141003
  Transmission Date: 20150529
  Serious: Yes (Hospitalization, Other)
  Sender: FDA-Public Use
  Company Number: PHHO2013DE001421

PATIENT
  Age: 40 Year
  Sex: Male
  Weight: 104 kg

DRUGS (4)
  1. METHOTREXATE [Suspect]
     Active Substance: METHOTREXATE
     Indication: RHEUMATOID ARTHRITIS
     Dosage: 10 MG, QW
     Route: 048
     Dates: start: 20100625
  2. FOLIAMIN [Concomitant]
     Active Substance: FOLIC ACID
     Dosage: 5 MG, UNK
     Dates: start: 200707
  3. GP2013 [Suspect]
     Active Substance: RITUXIMAB
     Indication: RHEUMATOID ARTHRITIS
     Dosage: UNK
     Route: 042
     Dates: start: 20120102
  4. DECORTIN [Concomitant]
     Active Substance: PREDNISONE
     Dosage: 5 MG, UNK
     Dates: start: 20121212

REACTIONS (3)
  - Fistula [Recovered/Resolved]
  - Groin abscess [Recovered/Resolved]
  - Pilonidal cyst [Recovered/Resolved]

NARRATIVE: CASE EVENT DATE: 201209
